FAERS Safety Report 14507625 (Version 2)
Quarter: 2018Q1

REPORT INFORMATION
  Report Type: Spontaneous
  Country: US (occurrence: US)
  Receive Date: 20180208
  Receipt Date: 20180222
  Transmission Date: 20180509
  Serious: No
  Sender: FDA-Public Use
  Company Number: US-ACTELION-A-NJ2018-167380

PATIENT
  Age: 61 Year
  Sex: Female
  Weight: 107.48 kg

DRUGS (3)
  1. OPSUMIT [Suspect]
     Active Substance: MACITENTAN
     Indication: PULMONARY ARTERIAL HYPERTENSION
     Dosage: 10 MG, QD
     Route: 048
  2. UPTRAVI [Concomitant]
     Active Substance: SELEXIPAG
     Indication: PULMONARY ARTERIAL HYPERTENSION
     Dosage: UNK
     Route: 048
  3. SILDENAFIL. [Concomitant]
     Active Substance: SILDENAFIL

REACTIONS (7)
  - Paranasal sinus hypersecretion [Unknown]
  - Paranasal sinus discomfort [Unknown]
  - Pain [Unknown]
  - Chondrocalcinosis pyrophosphate [Unknown]
  - Eye pain [Unknown]
  - Nasal congestion [Unknown]
  - Facial pain [Unknown]
